FAERS Safety Report 6373100-7 (Version None)
Quarter: 2009Q3

REPORT INFORMATION
  Report Type: 
  Country: None (occurrence: None)
  Receive Date: 20090924
  Receipt Date: 20090611
  Transmission Date: 20100115
  Serious: Yes (Other)
  Sender: FDA-Public Use
  Company Number: US-ASTRAZENECA-2009UW03074

PATIENT
  Sex: Female
  Weight: 58.5 kg

DRUGS (4)
  1. SEROQUEL [Suspect]
     Indication: DEPRESSION
     Route: 048
     Dates: start: 20010101, end: 20020101
  2. GEODON [Concomitant]
  3. HALDOL [Concomitant]
  4. RISPERDAL [Concomitant]

REACTIONS (5)
  - BLOOD CHOLESTEROL [None]
  - GASTROOESOPHAGEAL REFLUX DISEASE [None]
  - PANCREATITIS [None]
  - THYROID DISORDER [None]
  - TYPE 2 DIABETES MELLITUS [None]
